FAERS Safety Report 16799732 (Version 2)
Quarter: 2022Q3

REPORT INFORMATION
  Report Type: Spontaneous
  Country: US (occurrence: US)
  Receive Date: 20190912
  Receipt Date: 20220928
  Transmission Date: 20221027
  Serious: Yes (Hospitalization)
  Sender: FDA-Public Use
  Company Number: US-VERTEX PHARMACEUTICALS-2019-008340

PATIENT
  Age: 16 Year
  Sex: Male

DRUGS (25)
  1. SYMDEKO [Suspect]
     Active Substance: IVACAFTOR\TEZACAFTOR
     Indication: Cystic fibrosis
     Dosage: 1 TABLET (100 MG TEZACAFTOR/ 150 MG IVACAFTOR IN AM AND 150 MG IVACAFTOR IN PM), BID
     Route: 048
     Dates: start: 20190617, end: 20191125
  2. ADVAIR HFA [Concomitant]
     Active Substance: FLUTICASONE PROPIONATE\SALMETEROL XINAFOATE
  3. ALBUTEROL [Concomitant]
     Active Substance: ALBUTEROL
  4. AMLODIPINE [Concomitant]
     Active Substance: AMLODIPINE BESYLATE
  5. BUDESONIDE [Concomitant]
     Active Substance: BUDESONIDE
  6. CYPROHEPTADINE [Concomitant]
     Active Substance: CYPROHEPTADINE
  7. GLUCAGON [Concomitant]
     Active Substance: GLUCAGON
  8. HUMALOG [Concomitant]
     Active Substance: INSULIN LISPRO
  9. HYDROCHLOROTHIAZIDE [Concomitant]
     Active Substance: HYDROCHLOROTHIAZIDE
  10. A-HYDROCORT [Concomitant]
     Active Substance: HYDROCORTISONE SODIUM SUCCINATE
  11. LACTULOSE [Concomitant]
     Active Substance: LACTULOSE
  12. MEDIUM-CHAIN TRIGLYCERIDES [Concomitant]
     Active Substance: MEDIUM-CHAIN TRIGLYCERIDES
  13. LISINOPRIL [Concomitant]
     Active Substance: LISINOPRIL
  14. PRAVASTATIN [Concomitant]
     Active Substance: PRAVASTATIN
  15. PULMOZYME [Concomitant]
     Active Substance: DORNASE ALFA
  16. TOBI PODHALER [Concomitant]
     Active Substance: TOBRAMYCIN
  17. VENTOLIN [Concomitant]
     Active Substance: ALBUTEROL SULFATE
  18. VORICONAZOLE [Concomitant]
     Active Substance: VORICONAZOLE
  19. ZENPEP [Concomitant]
     Active Substance: PANCRELIPASE AMYLASE\PANCRELIPASE LIPASE\PANCRELIPASE PROTEASE
  20. LANTUS [Concomitant]
     Active Substance: INSULIN GLARGINE
  21. COLISTIMETHATE [Concomitant]
     Active Substance: COLISTIMETHATE SODIUM
  22. CIPROFLOXACIN [Concomitant]
     Active Substance: CIPROFLOXACIN
  23. MONTELUKAST [Concomitant]
     Active Substance: MONTELUKAST SODIUM
  24. SULFAMETHOXAZOLE\TRIMETHOPRIM [Concomitant]
     Active Substance: SULFAMETHOXAZOLE\TRIMETHOPRIM
  25. ARIPIPRAZOLE [Concomitant]
     Active Substance: ARIPIPRAZOLE

REACTIONS (2)
  - Cystic fibrosis respiratory infection suppression [Unknown]
  - Malaise [Not Recovered/Not Resolved]

NARRATIVE: CASE EVENT DATE: 20190701
